FAERS Safety Report 15942062 (Version 2)
Quarter: 2019Q2

REPORT INFORMATION
  Report Type: Spontaneous
  Country: US (occurrence: US)
  Receive Date: 20190210
  Receipt Date: 20190516
  Transmission Date: 20190711
  Serious: Yes (Other)
  Sender: FDA-Public Use
  Company Number: US-JNJFOC-20190133716

PATIENT
  Age: 51 Year
  Sex: Female
  Weight: 72.12 kg

DRUGS (5)
  1. REXULTI [Concomitant]
     Active Substance: BREXPIPRAZOLE
     Indication: STRESS
     Route: 065
  2. ZYRTEC [Concomitant]
     Active Substance: CETIRIZINE HYDROCHLORIDE
     Indication: SEASONAL ALLERGY
     Route: 065
  3. REXULTI [Concomitant]
     Active Substance: BREXPIPRAZOLE
     Indication: RECTAL SPASM
     Route: 065
  4. HUMIRA [Suspect]
     Active Substance: ADALIMUMAB
     Indication: CROHN^S DISEASE
     Dosage: 40 MG/0.8ML (40 MILLIGRAM, SOLUTION FOR INJECTION IN PRE-FILLED PEN)
     Route: 058
  5. REMICADE [Suspect]
     Active Substance: INFLIXIMAB
     Indication: CROHN^S DISEASE
     Route: 042
     Dates: start: 2010, end: 2013

REACTIONS (12)
  - Sinus congestion [Not Recovered/Not Resolved]
  - Sinusitis [Not Recovered/Not Resolved]
  - Scoliosis [Unknown]
  - Injection site pain [Not Recovered/Not Resolved]
  - Anal abscess [Recovered/Resolved]
  - Taste disorder [Unknown]
  - Crohn^s disease [Not Recovered/Not Resolved]
  - Therapeutic response shortened [Recovered/Resolved]
  - Dyspnoea [Recovered/Resolved]
  - Infection [Recovered/Resolved]
  - Tooth fracture [Recovered/Resolved]
  - Osteopenia [Not Recovered/Not Resolved]

NARRATIVE: CASE EVENT DATE: 2014
